FAERS Safety Report 7308658-4 (Version None)
Quarter: 2011Q1

REPORT INFORMATION
  Report Type: 
  Country: None (occurrence: None)
  Receive Date: 20110223
  Receipt Date: 20110216
  Transmission Date: 20110831
  Serious: Yes (Hospitalization)
  Sender: FDA-Public Use
  Company Number: JP-MERCK-1102USA02278

PATIENT

DRUGS (1)
  1. ZETIA [Suspect]
     Route: 048

REACTIONS (1)
  - LIVER DISORDER [None]
